FAERS Safety Report 19811355 (Version 4)
Quarter: 2022Q1

REPORT INFORMATION
  Report Type: Report from Study
  Country: US (occurrence: US)
  Receive Date: 20210910
  Receipt Date: 20220121
  Transmission Date: 20220423
  Serious: No
  Sender: FDA-Public Use
  Company Number: US-ACADIA PHARMACEUTICALS INC.-ACA-2021-PIM-003016

PATIENT
  Age: 77 Year
  Sex: Male
  Weight: 67 kg

DRUGS (21)
  1. NUPLAZID [Suspect]
     Active Substance: PIMAVANSERIN TARTRATE
     Indication: Parkinson^s disease psychosis
     Dosage: 10 MILLIGRAM, QD AT NIGHT
     Route: 065
     Dates: start: 20210819
  2. NUPLAZID [Suspect]
     Active Substance: PIMAVANSERIN TARTRATE
     Indication: Hallucination
  3. NUPLAZID [Suspect]
     Active Substance: PIMAVANSERIN TARTRATE
     Indication: Delusion
  4. NUPLAZID [Suspect]
     Active Substance: PIMAVANSERIN TARTRATE
     Indication: Rapid eye movement sleep behaviour disorder
  5. NUPLAZID [Suspect]
     Active Substance: PIMAVANSERIN TARTRATE
     Indication: Parkinson^s disease psychosis
     Dosage: 34 MILLIGRAM, QD
     Route: 048
     Dates: start: 20210816
  6. NUPLAZID [Suspect]
     Active Substance: PIMAVANSERIN TARTRATE
     Indication: Hallucination
  7. NUPLAZID [Suspect]
     Active Substance: PIMAVANSERIN TARTRATE
     Indication: Delusion
  8. SEROQUEL [Concomitant]
     Active Substance: QUETIAPINE FUMARATE
  9. CARBIDOPA\LEVODOPA [Concomitant]
     Active Substance: CARBIDOPA\LEVODOPA
     Dosage: 25/100 TID
  10. CARBIDOPA\LEVODOPA [Concomitant]
     Active Substance: CARBIDOPA\LEVODOPA
     Dosage: ER, 8 PM
  11. ATORVASTATIN [Concomitant]
     Active Substance: ATORVASTATIN
     Dosage: 80 MILLIGRAM, QD
  12. CYMBALTA [Concomitant]
     Active Substance: DULOXETINE HYDROCHLORIDE
     Dosage: 60 MILLIGRAM TWO DAILY
  13. BUSPIRONE [Concomitant]
     Active Substance: BUSPIRONE HYDROCHLORIDE
     Dosage: TWO TID
  14. BUSPIRONE [Concomitant]
     Active Substance: BUSPIRONE HYDROCHLORIDE
     Dosage: THREE TID
  15. DONEPEZIL [Concomitant]
     Active Substance: DONEPEZIL
     Dosage: 10 MG TWO TABS AT NIGHT
  16. ASPIRIN [Concomitant]
     Active Substance: ASPIRIN
     Dosage: 81 MILLIGRAM
  17. BELSOMRA [Concomitant]
     Active Substance: SUVOREXANT
     Indication: Sleep disorder
     Dosage: 20 MILLIGRAM (1/2 TABLET AT NIGHT)
  18. KLONOPIN [Concomitant]
     Active Substance: CLONAZEPAM
     Indication: Rapid eye movements sleep abnormal
     Dosage: 0.5 MG TAB-1/8 OF A TAB
  19. MELATONIN [Concomitant]
     Active Substance: MELATONIN
     Dosage: 10 MILLIGRAM ODT PRN
  20. MYRBETRIQ [Concomitant]
     Active Substance: MIRABEGRON
  21. NORTHERA [Concomitant]
     Active Substance: DROXIDOPA
     Indication: Blood pressure abnormal

REACTIONS (25)
  - Delusion [Unknown]
  - Paraesthesia [Unknown]
  - Drug intolerance [Unknown]
  - Prescribed underdose [Not Recovered/Not Resolved]
  - Fatigue [Unknown]
  - Headache [Unknown]
  - Hypersomnia [Unknown]
  - Screaming [Unknown]
  - Dysarthria [Unknown]
  - Delusion [Unknown]
  - Posture abnormal [Unknown]
  - Balance disorder [Recovering/Resolving]
  - Feeling abnormal [Unknown]
  - Abnormal behaviour [Unknown]
  - Abnormal dreams [Unknown]
  - Delusion [Unknown]
  - Therapeutic response unexpected [Unknown]
  - Insomnia [Not Recovered/Not Resolved]
  - Anxiety [Not Recovered/Not Resolved]
  - Delusion [Not Recovered/Not Resolved]
  - Blood pressure decreased [Not Recovered/Not Resolved]
  - Agitation [Not Recovered/Not Resolved]
  - Somnolence [Recovering/Resolving]
  - Confusional state [Unknown]
  - Hallucination [Not Recovered/Not Resolved]

NARRATIVE: CASE EVENT DATE: 20210801
